FAERS Safety Report 10910962 (Version 1)
Quarter: 2015Q1

REPORT INFORMATION
  Report Type: Spontaneous
  Country: US (occurrence: US)
  Receive Date: 20150312
  Receipt Date: 20150312
  Transmission Date: 20150721
  Serious: No
  Sender: FDA-Public Use
  Company Number: US-GLAXOSMITHKLINE-US2015028303

PATIENT
  Sex: Female

DRUGS (12)
  1. TAFINLAR [Suspect]
     Active Substance: DABRAFENIB MESYLATE
     Indication: MALIGNANT MELANOMA
     Dosage: 300 MG, BID
     Route: 048
     Dates: start: 20150117, end: 20150228
  2. MEKINIST [Suspect]
     Active Substance: TRAMETINIB DIMETHYL SULFOXIDE
     Indication: MALIGNANT MELANOMA
     Dosage: 2 MG, QD
     Route: 048
     Dates: start: 20150117, end: 20150228
  3. BACLOFEN. [Concomitant]
     Active Substance: BACLOFEN
  4. COMPAZINE [Concomitant]
     Active Substance: PROCHLORPERAZINE MALEATE
  5. DEXILANT [Concomitant]
     Active Substance: DEXLANSOPRAZOLE
  6. HYDROMORPHONE [Concomitant]
     Active Substance: HYDROMORPHONE
  7. TAFINLAR [Suspect]
     Active Substance: DABRAFENIB MESYLATE
     Dosage: 200 MG, BID
     Route: 048
     Dates: start: 20150228
  8. OXYCODONE [Concomitant]
     Active Substance: OXYCODONE
  9. ZOFRAN [Concomitant]
     Active Substance: ONDANSETRON HYDROCHLORIDE
  10. MEKINIST [Suspect]
     Active Substance: TRAMETINIB DIMETHYL SULFOXIDE
     Dosage: 1.5 MG, QD
     Route: 048
     Dates: start: 20150228
  11. KEPPRA [Concomitant]
     Active Substance: LEVETIRACETAM
  12. SOTALOL. [Concomitant]
     Active Substance: SOTALOL

REACTIONS (4)
  - Corrective lens user [Not Recovered/Not Resolved]
  - Dry eye [Not Recovered/Not Resolved]
  - Vision blurred [Not Recovered/Not Resolved]
  - Hypoaesthesia [Not Recovered/Not Resolved]
